FAERS Safety Report 7961668-6 (Version None)
Quarter: 2011Q4

REPORT INFORMATION
  Report Type: 
  Country: None (occurrence: None)
  Receive Date: 20111207
  Receipt Date: 20111202
  Transmission Date: 20120403
  Serious: Yes (Death, Hospitalization, Congenital Anomaly, Other)
  Sender: FDA-Public Use
  Company Number: US-PFIZER INC-2011139942

PATIENT
  Sex: Female

DRUGS (2)
  1. ZOLOFT [Suspect]
     Indication: DEPRESSION
     Dosage: 50 MG, 1X/DAY
     Route: 064
     Dates: start: 20030219, end: 20030501
  2. LEXAPRO [Suspect]
     Indication: DEPRESSION
     Dosage: UNK
     Route: 064
     Dates: start: 20030101, end: 20030101

REACTIONS (4)
  - FOETAL EXPOSURE DURING PREGNANCY [None]
  - AORTIC STENOSIS [None]
  - LEFT VENTRICULAR FAILURE [None]
  - LEFT VENTRICULAR DYSFUNCTION [None]
